FAERS Safety Report 10735902 (Version 1)
Quarter: 2015Q1

REPORT INFORMATION
  Report Type: Spontaneous
  Country: US (occurrence: None)
  Receive Date: 20150122
  Receipt Date: 20150122
  Transmission Date: 20150721
  Serious: Yes (Hospitalization)
  Sender: FDA-Public Use
  Company Number: None

PATIENT
  Age: 56 Year
  Sex: Female

DRUGS (1)
  1. BOSULIF [Suspect]
     Active Substance: BOSUTINIB MONOHYDRATE
     Indication: CHRONIC MYELOID LEUKAEMIA
     Route: 048
     Dates: start: 20141014, end: 20141018

REACTIONS (6)
  - Malaise [None]
  - Oral disorder [None]
  - Diarrhoea [None]
  - Feeding disorder [None]
  - Tongue disorder [None]
  - Fluid intake reduced [None]

NARRATIVE: CASE EVENT DATE: 20140115
